APPROVED DRUG PRODUCT: PREDNISOLONE
Active Ingredient: PREDNISOLONE
Strength: 5MG/5ML
Dosage Form/Route: SYRUP;ORAL
Application: A040423 | Product #001
Applicant: NESHER PHARMACEUTICALS USA LLC
Approved: Oct 22, 2001 | RLD: No | RS: No | Type: DISCN